FAERS Safety Report 9728251 (Version 2)
Quarter: 2013Q4

REPORT INFORMATION
  Report Type: Spontaneous
  Country: US (occurrence: US)
  Receive Date: 20131204
  Receipt Date: 20131226
  Transmission Date: 20140711
  Serious: No
  Sender: FDA-Public Use
  Company Number: US-JNJFOC-20131114804

PATIENT
  Age: 21 Year
  Sex: Male

DRUGS (1)
  1. INVEGA [Suspect]
     Indication: PSYCHOTIC DISORDER
     Route: 048
     Dates: start: 20120228, end: 20120628

REACTIONS (6)
  - Dizziness [Recovered/Resolved]
  - Dry mouth [Recovered/Resolved]
  - Akathisia [Recovered/Resolved]
  - Muscle spasms [Recovered/Resolved]
  - Sensation of heaviness [Recovered/Resolved]
  - Musculoskeletal stiffness [Recovered/Resolved]
